FAERS Safety Report 20444478 (Version 4)
Quarter: 2023Q1

REPORT INFORMATION
  Report Type: Spontaneous
  Country: US (occurrence: US)
  Receive Date: 20220208
  Receipt Date: 20230109
  Transmission Date: 20230417
  Serious: No
  Sender: FDA-Public Use
  Company Number: US-AMGEN-USASP2022019231

PATIENT
  Sex: Female

DRUGS (11)
  1. ENBREL [Suspect]
     Active Substance: ETANERCEPT
     Indication: Rheumatoid arthritis
     Dosage: 50 MILLIGRAM, QWK
     Route: 058
     Dates: start: 20211216
  2. ENBREL [Suspect]
     Active Substance: ETANERCEPT
     Dosage: 50 MILLIGRAM, QWK
     Route: 058
  3. ENBREL [Suspect]
     Active Substance: ETANERCEPT
     Dosage: 50 MILLIGRAM, QWK
     Route: 058
  4. ALOPRIM [Concomitant]
     Active Substance: ALLOPURINOL
     Dosage: (SOL) 500 MILLIGRAM
     Route: 065
  5. COREG [Concomitant]
     Active Substance: CARVEDILOL
     Dosage: 6.25 MILLIGRAM
     Route: 065
  6. LASIX [Concomitant]
     Active Substance: FUROSEMIDE
     Dosage: 80 MILLIGRAM
     Route: 065
  7. PERCOCET [Concomitant]
     Active Substance: ACETAMINOPHEN\OXYCODONE HYDROCHLORIDE
     Dosage: 10-325 MILLIGRAM
     Route: 065
  8. PLAQUENIL [Concomitant]
     Active Substance: HYDROXYCHLOROQUINE SULFATE
     Dosage: 200 MILLIGRAM
  9. PREVACID [Concomitant]
     Active Substance: LANSOPRAZOLE
     Dosage: (CPD) 30 MILLIGRAM
  10. ZOCOR [Concomitant]
     Active Substance: SIMVASTATIN
     Dosage: 30 MILLIGRAM
     Route: 065
  11. ZOCOR [Concomitant]
     Active Substance: SIMVASTATIN
     Dosage: 40 MILLIGRAM

REACTIONS (10)
  - Therapy partial responder [Recovered/Resolved]
  - Urinary tract infection [Not Recovered/Not Resolved]
  - Neck pain [Not Recovered/Not Resolved]
  - Pain in extremity [Not Recovered/Not Resolved]
  - Joint space narrowing [Not Recovered/Not Resolved]
  - Peripheral swelling [Not Recovered/Not Resolved]
  - Arthralgia [Not Recovered/Not Resolved]
  - Sleep disorder due to general medical condition, insomnia type [Not Recovered/Not Resolved]
  - Pain [Not Recovered/Not Resolved]
  - Gait inability [Not Recovered/Not Resolved]
